FAERS Safety Report 4674262-X (Version None)
Quarter: 2005Q2

REPORT INFORMATION
  Report Type: 
  Country: None (occurrence: None)
  Receive Date: 20050526
  Receipt Date: 20050517
  Transmission Date: 20051028
  Serious: Yes (Other)
  Sender: FDA-Public Use
  Company Number: FR-BRISTOL-MYERS SQUIBB COMPANY-12973632

PATIENT

DRUGS (1)
  1. REYATAZ [Suspect]
     Indication: HIV INFECTION
     Route: 048

REACTIONS (2)
  - FACIAL PALSY [None]
  - JAUNDICE [None]
